FAERS Safety Report 6999424-8 (Version None)
Quarter: 2010Q3

REPORT INFORMATION
  Report Type: 
  Country: None (occurrence: None)
  Receive Date: 20100920
  Receipt Date: 20100909
  Transmission Date: 20110219
  Serious: Yes (Other)
  Sender: FDA-Public Use
  Company Number: US-MYLANLABS-2010S1015120

PATIENT
  Age: 50 Year
  Sex: Female

DRUGS (7)
  1. EMSAM (SELEGILINE TRANSDERMAL SYSTEM) [Suspect]
     Indication: DEPRESSION
     Route: 062
     Dates: start: 20100701, end: 20100902
  2. EMSAM (SELEGILINE TRANSDERMAL SYSTEM) [Suspect]
     Indication: ANXIETY
     Route: 062
     Dates: start: 20100701, end: 20100902
  3. EMSAM (SELEGILINE TRANSDERMAL SYSTEM) [Suspect]
     Indication: OBSESSIVE-COMPULSIVE DISORDER
     Route: 062
     Dates: start: 20100701, end: 20100902
  4. LUNESTA [Concomitant]
  5. LORAZEPAM [Concomitant]
  6. IMODIUM [Concomitant]
  7. METAMUCIL-2 [Concomitant]

REACTIONS (17)
  - ABNORMAL LOSS OF WEIGHT [None]
  - ANXIETY [None]
  - CHILLS [None]
  - DECREASED APPETITE [None]
  - HAEMATOCHEZIA [None]
  - HYPOAESTHESIA [None]
  - INSOMNIA [None]
  - MOOD ALTERED [None]
  - MUSCLE SPASMS [None]
  - MUSCULOSKELETAL STIFFNESS [None]
  - NERVOUSNESS [None]
  - PARAESTHESIA [None]
  - RECTAL HAEMORRHAGE [None]
  - RESTLESSNESS [None]
  - SLEEP DISORDER [None]
  - TARDIVE DYSKINESIA [None]
  - THERAPEUTIC RESPONSE DECREASED [None]
